FAERS Safety Report 5845261-7 (Version None)
Quarter: 2008Q3

REPORT INFORMATION
  Report Type: 
  Country: None (occurrence: None)
  Receive Date: 20080814
  Receipt Date: 20080730
  Transmission Date: 20090109
  Serious: Yes (Hospitalization)
  Sender: FDA-Public Use
  Company Number: IE-GENENTECH-264467

PATIENT
  Sex: Male

DRUGS (8)
  1. XOLAIR [Suspect]
     Indication: ASTHMA
     Dosage: 225 MG, Q2W
     Route: 058
     Dates: start: 20080626
  2. AUGMENTIN '125' [Concomitant]
     Indication: DRUG USE FOR UNKNOWN INDICATION
  3. ANALGESICS [Concomitant]
     Indication: DRUG USE FOR UNKNOWN INDICATION
  4. SERETIDE [Concomitant]
     Indication: DRUG USE FOR UNKNOWN INDICATION
  5. THEOPHYLLINE [Concomitant]
     Indication: DRUG USE FOR UNKNOWN INDICATION
  6. VENTOLIN [Concomitant]
     Indication: DRUG USE FOR UNKNOWN INDICATION
  7. BUDESONIDE [Concomitant]
     Indication: DRUG USE FOR UNKNOWN INDICATION
  8. SINGULAIR [Concomitant]
     Indication: DRUG USE FOR UNKNOWN INDICATION

REACTIONS (3)
  - FACE INJURY [None]
  - LIMB INJURY [None]
  - SKIN LACERATION [None]
